FAERS Safety Report 9171081 (Version 3)
Quarter: 2013Q3

REPORT INFORMATION
  Report Type: Spontaneous
  Country: DE (occurrence: DE)
  Receive Date: 20130319
  Receipt Date: 20130701
  Transmission Date: 20140515
  Serious: No
  Sender: FDA-Public Use
  Company Number: PHHY2013DE026558

PATIENT
  Sex: Male
  Weight: 78 kg

DRUGS (3)
  1. TASIGNA [Suspect]
     Dosage: 4 DF, DAILY
     Dates: start: 20130221
  2. ADENURIC [Concomitant]
     Dosage: 1 DF, IN THE MORNING EVERY OTHER DAY
  3. AMLODIPINE [Concomitant]
     Dosage: 2 DF

REACTIONS (7)
  - Ear discomfort [Recovered/Resolved]
  - Temperature intolerance [Unknown]
  - Pruritus generalised [Not Recovered/Not Resolved]
  - Abdominal discomfort [Unknown]
  - Chills [Recovered/Resolved]
  - Abdominal pain upper [Unknown]
  - Nocturia [Unknown]
